FAERS Safety Report 11757245 (Version 1)
Quarter: 2015Q4

REPORT INFORMATION
  Report Type: Spontaneous
  Country: None (occurrence: None)
  Receive Date: 20151119
  Receipt Date: 20151119
  Transmission Date: 20160304
  Serious: Yes (Hospitalization)
  Sender: FDA-Public Use
  Company Number: None

PATIENT
  Age: 62 Year
  Sex: Female
  Weight: 51.8 kg

DRUGS (2)
  1. ERBITUX [Suspect]
     Active Substance: CETUXIMAB
     Dates: end: 20151102
  2. TAXOTERE [Suspect]
     Active Substance: DOCETAXEL
     Dates: end: 20151102

REACTIONS (5)
  - Haemoptysis [None]
  - Sputum discoloured [None]
  - Catheter site discharge [None]
  - Drug dose omission [None]
  - Skin infection [None]

NARRATIVE: CASE EVENT DATE: 20151108
